FAERS Safety Report 9921247 (Version 1)
Quarter: 2014Q1

REPORT INFORMATION
  Report Type: Spontaneous
  Country: US (occurrence: None)
  Receive Date: 20140221
  Receipt Date: 20140221
  Transmission Date: 20141002
  Serious: Yes (Hospitalization, Disabling, Other)
  Sender: FDA-Public Use
  Company Number: None

PATIENT
  Age: 70 Year
  Sex: Female
  Weight: 81.19 kg

DRUGS (2)
  1. KENIVAC [Suspect]
     Indication: GALLBLADDER DISORDER
     Dosage: MIX AT NUCLEAR DEPT LAB.
     Dates: start: 20130702
  2. CHOLETEC [Suspect]

REACTIONS (4)
  - Weight decreased [None]
  - Dysgeusia [None]
  - Muscle spasms [None]
  - Diarrhoea [None]
